FAERS Safety Report 7269393-4 (Version None)
Quarter: 2011Q1

REPORT INFORMATION
  Report Type: 
  Country: None (occurrence: None)
  Receive Date: 20110202
  Receipt Date: 20110121
  Transmission Date: 20110831
  Serious: Yes (Other)
  Sender: FDA-Public Use
  Company Number: JP-BRISTOL-MYERS SQUIBB COMPANY-15519507

PATIENT
  Age: 30 Year
  Sex: Male

DRUGS (3)
  1. ACTOS [Concomitant]
  2. AMARYL [Concomitant]
  3. METGLUCO [Suspect]
     Route: 048

REACTIONS (1)
  - RHABDOMYOLYSIS [None]
